FAERS Safety Report 5329690-6 (Version None)
Quarter: 2007Q2

REPORT INFORMATION
  Report Type: 
  Country: None (occurrence: None)
  Receive Date: 20070521
  Receipt Date: 20070510
  Transmission Date: 20071010
  Serious: Yes (Hospitalization)
  Sender: FDA-Public Use
  Company Number: FR-BAXTER-2007BH003226

PATIENT
  Age: 81 Year
  Sex: Female

DRUGS (9)
  1. EXTRANEAL [Suspect]
     Indication: PERITONEAL DIALYSIS
     Dosage: DOSE UNIT:UNKNOWN
     Route: 033
     Dates: start: 20031017
  2. EXTRANEAL [Suspect]
     Dosage: DOSE UNIT:UNKNOWN
     Route: 033
     Dates: start: 20061201
  3. EXTRANEAL [Suspect]
     Dosage: DOSE UNIT:UNKNOWN
     Route: 033
     Dates: start: 20070101
  4. LASIX [Concomitant]
     Route: 048
  5. EUCALCIC [Concomitant]
     Route: 048
  6. KARDEGIC /FRA/ [Concomitant]
  7. KALEORID [Concomitant]
     Route: 048
  8. DOLIPRANE [Concomitant]
     Route: 048
  9. EPOETIN BETA [Concomitant]
     Route: 058
     Dates: start: 20070212

REACTIONS (1)
  - SCLEROSING ENCAPSULATING PERITONITIS [None]
